FAERS Safety Report 6824623-5 (Version None)
Quarter: 2010Q3

REPORT INFORMATION
  Report Type: 
  Country: None (occurrence: None)
  Receive Date: 20100708
  Receipt Date: 20061108
  Transmission Date: 20110219
  Serious: No
  Sender: FDA-Public Use
  Company Number: US-PFIZER INC-2006140593

PATIENT
  Sex: Female
  Weight: 67.13 kg

DRUGS (12)
  1. CHANTIX [Suspect]
     Indication: SMOKING CESSATION THERAPY
     Dates: start: 20061024
  2. LAXATIVES [Concomitant]
  3. PREMARIN [Concomitant]
  4. CLARITIN [Concomitant]
  5. SUDAFED 12 HOUR [Concomitant]
  6. NASONEX [Concomitant]
  7. LOVAZA [Concomitant]
  8. VITAMIN B [Concomitant]
  9. MULTI-VITAMINS [Concomitant]
  10. THYROID TAB [Concomitant]
  11. ALL OTHER THERAPEUTIC PRODUCTS [Concomitant]
  12. FLAXSEED OIL [Concomitant]
     Dosage: 2 EVERY 1 WEEKS

REACTIONS (3)
  - CONSTIPATION [None]
  - FATIGUE [None]
  - SOMNOLENCE [None]
